FAERS Safety Report 5935653-X (Version None)
Quarter: 2008Q4

REPORT INFORMATION
  Report Type: 
  Country: None (occurrence: None)
  Receive Date: 20081030
  Receipt Date: 20081024
  Transmission Date: 20090506
  Serious: Yes (Death)
  Sender: FDA-Public Use
  Company Number: CA-NOVOPROD-280652

PATIENT
  Age: 64 Year
  Sex: Male

DRUGS (1)
  1. NIASTASE [Suspect]
     Indication: HAEMORRHAGE
     Route: 042

REACTIONS (1)
  - PULMONARY ARTERY THROMBOSIS [None]
